FAERS Safety Report 8451903-2 (Version None)
Quarter: 2012Q2

REPORT INFORMATION
  Report Type: 
  Country: None (occurrence: None)
  Receive Date: 20120620
  Receipt Date: 20120323
  Transmission Date: 20120825
  Serious: No
  Sender: FDA-Public Use
  Company Number: US-VERTEX PHARMACEUTICALS INC.-AE-2012-004260

PATIENT
  Sex: Female
  Weight: 101.24 kg

DRUGS (5)
  1. RIBAVIRIN [Concomitant]
     Indication: HEPATITIS C
     Route: 048
     Dates: start: 20120224, end: 20120318
  2. INCIVEK [Suspect]
     Indication: HEPATITIS C
     Route: 048
     Dates: start: 20120224
  3. RIBAVIRIN [Concomitant]
     Route: 048
     Dates: start: 20120319
  4. FLORINEF [Concomitant]
     Indication: TACHYCARDIA
     Route: 048
  5. PEGASYS [Concomitant]
     Indication: HEPATITIS C
     Route: 058
     Dates: start: 20120224

REACTIONS (5)
  - ANAEMIA [None]
  - CHEST DISCOMFORT [None]
  - NASOPHARYNGITIS [None]
  - COUGH [None]
  - NASAL CONGESTION [None]
